FAERS Safety Report 22100854 (Version 1)
Quarter: 2023Q1

REPORT INFORMATION
  Report Type: Spontaneous
  Country: US (occurrence: US)
  Receive Date: 20230316
  Receipt Date: 20230316
  Transmission Date: 20230418
  Serious: No
  Sender: FDA-Public Use
  Company Number: US-GSK-US2023AMR035753

PATIENT

DRUGS (4)
  1. IMITREX [Suspect]
     Active Substance: SUMATRIPTAN SUCCINATE
     Indication: Migraine
     Dosage: 50 MG
  2. IMITREX [Suspect]
     Active Substance: SUMATRIPTAN SUCCINATE
     Dosage: 100 MG
  3. BOTOX [Suspect]
     Active Substance: ONABOTULINUMTOXINA
     Indication: Product used for unknown indication
     Dosage: UNK
  4. GABAPENTIN [Suspect]
     Active Substance: GABAPENTIN
     Indication: Migraine
     Dosage: 900 MG

REACTIONS (1)
  - Drug effect less than expected [Not Recovered/Not Resolved]
